FAERS Safety Report 8320810-8 (Version None)
Quarter: 2012Q2

REPORT INFORMATION
  Report Type: 
  Country: None (occurrence: None)
  Receive Date: 20120430
  Receipt Date: 20120417
  Transmission Date: 20120825
  Serious: Yes (Hospitalization, Other)
  Sender: FDA-Public Use
  Company Number: PHHY2012BR033176

PATIENT
  Age: 76 Year
  Sex: Female

DRUGS (3)
  1. ALOFODIPINA [Concomitant]
  2. FORADIL [Suspect]
     Indication: LUNG DISORDER
  3. LOSARTAN POTASSIUM [Concomitant]
     Indication: HYPERTENSION
     Dosage: 1 DF, BID

REACTIONS (4)
  - DYSPNOEA [None]
  - CARDIAC DISORDER [None]
  - FATIGUE [None]
  - MALAISE [None]
